FAERS Safety Report 19063528 (Version 4)
Quarter: 2021Q2

REPORT INFORMATION
  Report Type: Report from Study
  Country: CN (occurrence: CN)
  Receive Date: 20210326
  Receipt Date: 20210629
  Transmission Date: 20210717
  Serious: Yes (Hospitalization)
  Sender: FDA-Public Use
  Company Number: CN-ROCHE-2794639

PATIENT
  Age: 44 Year
  Sex: Male
  Weight: 80.5 kg

DRUGS (25)
  1. POLATUZUMAB VEDOTIN. [Suspect]
     Active Substance: POLATUZUMAB VEDOTIN
     Indication: DIFFUSE LARGE B-CELL LYMPHOMA
     Dosage: START DATE OF MOST RECENT DOSE (144.9) PRIOR TO AE WAS 05/JAN/2021?START DATE OF MOST RECENT DOSE (1
     Route: 042
     Dates: start: 20201217
  2. ACICLOVIR [Concomitant]
     Active Substance: ACYCLOVIR
     Dates: start: 20201216
  3. LANSOPRAZOLE. [Concomitant]
     Active Substance: LANSOPRAZOLE
     Dates: start: 20210319, end: 20210326
  4. BENDAMUSTINE [Suspect]
     Active Substance: BENDAMUSTINE
     Indication: DIFFUSE LARGE B-CELL LYMPHOMA
     Dosage: START DATE OF MOST RECENT DOSE (178.2 MG) PRIOR TO AE WAS 05/JAN/2021?START DATE OF MOST RECENT DOSE
     Route: 042
     Dates: start: 20201217
  5. COMPOUND SULFAMETHOXAZOLE [Concomitant]
     Active Substance: SULFAMETHOXAZOLE
     Dates: start: 20201216
  6. DIPHENHYDRAMINE. [Concomitant]
     Active Substance: DIPHENHYDRAMINE
     Dates: start: 20210207, end: 20210207
  7. PARACETAMOL [Concomitant]
     Active Substance: ACETAMINOPHEN
     Dates: start: 20210302, end: 20210302
  8. IBUPROFEN. [Concomitant]
     Active Substance: IBUPROFEN
     Dates: start: 20210105, end: 20210105
  9. RITUXIMAB. [Suspect]
     Active Substance: RITUXIMAB
     Indication: DIFFUSE LARGE B-CELL LYMPHOMA
     Dosage: START DATE OF MOST RECENT DOSE (742.5 MG) PRIOR TO AE WAS 05/JAN/2021?START DATE OF MOST RECENT DOSE
     Route: 042
     Dates: start: 20201216
  10. COMPOUND AMMONIUM GLYCYRRHETATE [Concomitant]
     Dates: start: 20210105, end: 20210108
  11. ROXATIDINE ACETATE HYDROCHLORIDE [Concomitant]
     Active Substance: ROXATIDINE ACETATE HYDROCHLORIDE
     Dates: start: 20210207, end: 20210209
  12. SPLEEN POLYPEPTIDE [Concomitant]
     Dates: start: 20210105, end: 20210108
  13. PREDNISONE ACETATE [Concomitant]
     Active Substance: PREDNISONE ACETATE
     Route: 047
     Dates: start: 20210105, end: 20210105
  14. DIPHENHYDRAMINE. [Concomitant]
     Active Substance: DIPHENHYDRAMINE
     Dates: start: 20210105, end: 20210105
  15. PARACETAMOL [Concomitant]
     Active Substance: ACETAMINOPHEN
     Dates: start: 20210207, end: 20210207
  16. BICYCLOL [Concomitant]
     Active Substance: BICYCLOL
     Dates: start: 20210104, end: 20210108
  17. PANTOPRAZOLE SODIUM. [Concomitant]
     Active Substance: PANTOPRAZOLE SODIUM
     Dates: start: 20210207, end: 20210209
  18. PANTOPRAZOLE SODIUM. [Concomitant]
     Active Substance: PANTOPRAZOLE SODIUM
     Dates: start: 20210105, end: 20210209
  19. PREDNISONE ACETATE [Concomitant]
     Active Substance: PREDNISONE ACETATE
     Route: 047
     Dates: start: 20210207, end: 20210207
  20. DIPHENHYDRAMINE. [Concomitant]
     Active Substance: DIPHENHYDRAMINE
     Dates: start: 20210302, end: 20210302
  21. PANTOPRAZOLE SODIUM. [Concomitant]
     Active Substance: PANTOPRAZOLE SODIUM
     Dates: start: 20210301, end: 20210304
  22. PREDNISONE ACETATE [Concomitant]
     Active Substance: PREDNISONE ACETATE
     Route: 047
     Dates: start: 20210302, end: 20210302
  23. PARACETAMOL [Concomitant]
     Active Substance: ACETAMINOPHEN
     Dates: start: 20210105, end: 20210105
  24. DIISOPROPYLAMINE DICHLOROACETATE [Concomitant]
     Dates: start: 20210104, end: 20210108
  25. DIISOPROPYLAMINE DICHLOROACETATE [Concomitant]
     Dates: start: 20210301, end: 20210304

REACTIONS (1)
  - Myelosuppression [Not Recovered/Not Resolved]

NARRATIVE: CASE EVENT DATE: 20210203
